FAERS Safety Report 4772837-0 (Version None)
Quarter: 2005Q3

REPORT INFORMATION
  Report Type: 
  Country: None (occurrence: None)
  Receive Date: 20050919
  Receipt Date: 20050908
  Transmission Date: 20060218
  Serious: Yes (Hospitalization)
  Sender: FDA-Public Use
  Company Number: FR-JNJFOC-20050903484

PATIENT
  Age: 82 Year
  Sex: Female

DRUGS (14)
  1. TOPALGIC [Suspect]
     Indication: DRUG USE FOR UNKNOWN INDICATION
     Route: 048
  2. ECONAZOLE NITRATE [Suspect]
     Indication: DRUG USE FOR UNKNOWN INDICATION
     Route: 065
  3. MEPRONIZINE [Suspect]
     Route: 048
  4. MEPRONIZINE [Suspect]
     Indication: DRUG USE FOR UNKNOWN INDICATION
     Route: 048
  5. SOTALOL HCL [Suspect]
     Indication: DRUG USE FOR UNKNOWN INDICATION
     Route: 048
  6. FUROSEMIDE [Suspect]
     Indication: DRUG USE FOR UNKNOWN INDICATION
     Route: 048
  7. MEBEVERINE [Suspect]
     Indication: DRUG USE FOR UNKNOWN INDICATION
     Route: 048
  8. DIGOXINE NATIVELLE [Suspect]
     Indication: DRUG USE FOR UNKNOWN INDICATION
     Route: 048
  9. ENDOTELON [Suspect]
     Route: 048
  10. ENDOTELON [Suspect]
     Indication: DRUG USE FOR UNKNOWN INDICATION
     Route: 048
  11. PREVISCAN [Concomitant]
     Route: 048
  12. CALDINE [Concomitant]
     Route: 048
  13. HYPERIUM [Concomitant]
     Route: 048
  14. ALLOPURINOL [Concomitant]
     Route: 048

REACTIONS (2)
  - HYPOKALAEMIA [None]
  - TORSADE DE POINTES [None]
